FAERS Safety Report 4394316-5 (Version None)
Quarter: 2004Q3

REPORT INFORMATION
  Report Type: 
  Country: None (occurrence: None)
  Receive Date: 20040706
  Receipt Date: 20040622
  Transmission Date: 20050211
  Serious: Yes (Death)
  Sender: FDA-Public Use
  Company Number: 03P-163-0226196-00

PATIENT
  Age: 46 Year
  Sex: Male

DRUGS (1)
  1. VICODIN [Suspect]
     Dates: end: 20020101

REACTIONS (1)
  - MYOCARDIAL INFARCTION [None]
